FAERS Safety Report 6583523-9 (Version None)
Quarter: 2010Q1

REPORT INFORMATION
  Report Type: 
  Country: None (occurrence: None)
  Receive Date: 20100216
  Receipt Date: 20100210
  Transmission Date: 20100710
  Serious: Yes (Hospitalization)
  Sender: FDA-Public Use
  Company Number: PHHY2010FR07894

PATIENT
  Age: 63 Year
  Sex: Female

DRUGS (2)
  1. FEMARA [Suspect]
     Indication: BREAST CANCER
     Dosage: 1 DF, DAILY
  2. FIBRATES [Concomitant]
     Indication: HYPERTRIGLYCERIDAEMIA

REACTIONS (6)
  - ALOPECIA [None]
  - BLOOD CORTISOL INCREASED [None]
  - DIHYDROTESTOSTERONE INCREASED [None]
  - DYSPHONIA [None]
  - HYPERTRICHOSIS [None]
  - VIRILISM [None]
